FAERS Safety Report 8160197-7 (Version None)
Quarter: 2012Q1

REPORT INFORMATION
  Report Type: 
  Country: None (occurrence: None)
  Receive Date: 20120223
  Receipt Date: 20120210
  Transmission Date: 20120608
  Serious: Yes (Death)
  Sender: FDA-Public Use
  Company Number: DE-ALEXION-A201100999

PATIENT
  Sex: Female

DRUGS (5)
  1. AZITHROMYCIN [Concomitant]
     Indication: ANTIBIOTIC PROPHYLAXIS
     Dosage: UNK
     Dates: start: 20110531
  2. SOLIRIS [Suspect]
     Indication: HAEMOLYTIC URAEMIC SYNDROME
     Dosage: 900 MG, UNK
     Route: 042
     Dates: start: 20110530, end: 20110620
  3. CLONAZEPAM [Concomitant]
     Indication: CONVULSION
     Dosage: 1 MG, UNK
     Route: 042
     Dates: start: 20110530, end: 20110622
  4. MENCEVAX [Concomitant]
     Indication: IMMUNISATION
     Dosage: UNK
     Dates: start: 20110531, end: 20110531
  5. KEPPRA [Concomitant]
     Indication: CONVULSION
     Dosage: 500 MG, UNK
     Route: 042
     Dates: start: 20110530, end: 20110622

REACTIONS (3)
  - RENAL FAILURE [None]
  - HEPATIC FAILURE [None]
  - METASTASES TO LIVER [None]
